FAERS Safety Report 5658592-0 (Version None)
Quarter: 2008Q1

REPORT INFORMATION
  Report Type: 
  Country: None (occurrence: None)
  Receive Date: 20080310
  Receipt Date: 20070307
  Transmission Date: 20080703
  Serious: No
  Sender: FDA-Public Use
  Company Number: US-BAYER-200710724BCC

PATIENT
  Age: 61 Year
  Sex: Female
  Weight: 49 kg

DRUGS (2)
  1. ALEVE [Suspect]
     Indication: GROIN PAIN
     Dosage: TOTAL DAILY DOSE: 440 MG  UNIT DOSE: 220 MG
     Route: 048
     Dates: start: 20070226, end: 20070301
  2. FOSAMAX [Concomitant]

REACTIONS (5)
  - HYPERSENSITIVITY [None]
  - LIP SWELLING [None]
  - PRURITUS [None]
  - PRURITUS GENERALISED [None]
  - URTICARIA [None]
